FAERS Safety Report 8525727-1 (Version None)
Quarter: 2012Q3

REPORT INFORMATION
  Report Type: 
  Country: None (occurrence: None)
  Receive Date: 20120720
  Receipt Date: 20120709
  Transmission Date: 20120928
  Serious: Yes (Hospitalization, Other)
  Sender: FDA-Public Use
  Company Number: US-009507513-1110USA00602

PATIENT

DRUGS (4)
  1. MK-9278 [Concomitant]
     Indication: ROUTINE HEALTH MAINTENANCE
     Route: 048
     Dates: start: 19960101
  2. POTASSIUM (UNSPECIFIED) [Concomitant]
     Route: 048
  3. FOSAMAX [Suspect]
     Route: 048
  4. FOSAMAX [Suspect]
     Indication: ROUTINE HEALTH MAINTENANCE
     Dosage: 70 MG, QW
     Route: 048
     Dates: start: 20000501, end: 20090920

REACTIONS (60)
  - HYPERTENSIVE HEART DISEASE [None]
  - ANXIETY [None]
  - GROIN PAIN [None]
  - FALL [None]
  - FRACTURE NONUNION [None]
  - PALPITATIONS [None]
  - POLLAKIURIA [None]
  - SCOLIOSIS [None]
  - RECTAL HAEMORRHAGE [None]
  - NOCTURIA [None]
  - KYPHOSIS [None]
  - ECZEMA [None]
  - CYSTITIS [None]
  - URINARY TRACT INFECTION [None]
  - RHINORRHOEA [None]
  - DYSURIA [None]
  - TOOTH DEPOSIT [None]
  - PSORIASIS [None]
  - HEADACHE [None]
  - FEMUR FRACTURE [None]
  - HYPOTENSION [None]
  - HAEMATURIA [None]
  - WEIGHT FLUCTUATION [None]
  - TOOTH DISORDER [None]
  - ORAL DISORDER [None]
  - CHOLELITHIASIS [None]
  - BONE DENSITY DECREASED [None]
  - MOUTH HAEMORRHAGE [None]
  - DEVICE FAILURE [None]
  - SPONDYLOLISTHESIS [None]
  - INTERVERTEBRAL DISC PROTRUSION [None]
  - VERTIGO [None]
  - ARTHROPATHY [None]
  - ANAL CANCER STAGE III [None]
  - BLADDER DISCOMFORT [None]
  - INFLAMMATORY BOWEL DISEASE [None]
  - DENTAL PLAQUE [None]
  - RECTAL POLYP [None]
  - IMPAIRED HEALING [None]
  - CHEST PAIN [None]
  - OSTEOARTHRITIS [None]
  - GASTROENTERITIS RADIATION [None]
  - DEPRESSION [None]
  - SPINAL COLUMN STENOSIS [None]
  - VOMITING [None]
  - DIABETES MELLITUS [None]
  - FISTULA [None]
  - EXFOLIATIVE RASH [None]
  - NAUSEA [None]
  - MUSCLE SPASMS [None]
  - OEDEMA PERIPHERAL [None]
  - HAEMORRHAGIC ANAEMIA [None]
  - HAEMORRHOIDS [None]
  - URINE ODOUR ABNORMAL [None]
  - SUPRAPUBIC PAIN [None]
  - VAGINAL DISCHARGE [None]
  - HYPERLIPIDAEMIA [None]
  - RADICULOPATHY [None]
  - DYSPEPSIA [None]
  - DIARRHOEA [None]
